FAERS Safety Report 15321767 (Version 1)
Quarter: 2018Q3

REPORT INFORMATION
  Report Type: Spontaneous
  Country: FR (occurrence: FR)
  Receive Date: 20180827
  Receipt Date: 20180827
  Transmission Date: 20181010
  Serious: Yes (Hospitalization)
  Sender: FDA-Public Use
  Company Number: FR-SA-2018SA223159

PATIENT
  Age: 65 Year
  Sex: Female
  Weight: 65 kg

DRUGS (1)
  1. PLAVIX [Suspect]
     Active Substance: CLOPIDOGREL BISULFATE
     Indication: ISCHAEMIC STROKE
     Dosage: 1 DF, QD
     Route: 048
     Dates: start: 2012, end: 201711

REACTIONS (4)
  - Drug ineffective [Unknown]
  - Cerebrovascular accident [Recovered/Resolved with Sequelae]
  - Gene mutation identification test positive [Recovered/Resolved with Sequelae]
  - Drug resistance [Recovered/Resolved with Sequelae]

NARRATIVE: CASE EVENT DATE: 201711
